FAERS Safety Report 9192800 (Version 1)
Quarter: 2013Q1

REPORT INFORMATION
  Report Type: Spontaneous
  Country: US (occurrence: None)
  Receive Date: 20120703
  Receipt Date: 20120703
  Transmission Date: 20140127
  Serious: No
  Sender: FDA-Public Use
  Company Number: PHEH2012US009240

PATIENT
  Age: 43 Year
  Sex: Female

DRUGS (17)
  1. GILENYA  (FTY)CAPSULE,0.5MG [Suspect]
     Indication: RELAPSING-REMITTING MULTIPLE SCLEROSIS
     Route: 048
     Dates: start: 20111212
  2. ABILIFY (ARIPIPRAZOLE) [Concomitant]
  3. ADDERALL (AMFETAMINEASPARTATE, AMFETAMINE SULFATE, DEXAMFETAMINE SACCHARATE, DEXAMFETAMINE SULFATE) [Concomitant]
  4. FAMPRIDINE (FAMPRIDINE) [Concomitant]
  5. BACLOFEN (BACLOFEN) [Concomitant]
  6. BUTIRAN (BUTAMIRATE CITRATE) [Concomitant]
  7. DECADRON (DEXAMETHASONE) [Concomitant]
  8. DETROL (TOLTERODINE L-TARTRATE) [Concomitant]
  9. FROVA (FROVATRIPTAN SUCCINATE MONOHYDRATE) [Concomitant]
  10. KLONOPIN (CLONAZEPAM) (TABLETS) [Concomitant]
  11. LORTAB (HYDROCODONE BITARTTRATE, PARACETAMOL) [Concomitant]
  12. MOBIC (MELOXICAM) [Concomitant]
  13. TOPAMAX (TOPIRAMATE) [Concomitant]
  14. VALIUM (DIAZEPAM) [Concomitant]
  15. VITAMIN D3 (COLECALCIFEROL) [Concomitant]
  16. WELLBUTRIN (BUPROPRION HYDROCHLORIDE) [Concomitant]
  17. XANAX (ALPRAZOLAM) [Concomitant]

REACTIONS (6)
  - Mood altered [None]
  - Memory impairment [None]
  - Abnormal behaviour [None]
  - Musculoskeletal stiffness [None]
  - Muscle spasms [None]
  - Pain [None]
